FAERS Safety Report 22638010 (Version 1)
Quarter: 2023Q2

REPORT INFORMATION
  Report Type: Spontaneous
  Country: FR (occurrence: FR)
  Receive Date: 20230626
  Receipt Date: 20230626
  Transmission Date: 20230721
  Serious: Yes (Hospitalization)
  Sender: FDA-Public Use
  Company Number: FR-BoehringerIngelheim-2023-BI-245553

PATIENT
  Age: 15 Year
  Sex: Female
  Weight: 23 kg

DRUGS (1)
  1. CLONIDINE [Suspect]
     Active Substance: CLONIDINE
     Indication: Early onset primary dystonia
     Dosage: DAILY DOSE 10 ML 1/ (SOLUTION ? 1 MG/ML)
     Dates: start: 20230606, end: 20230606

REACTIONS (4)
  - Bradypnoea [Recovering/Resolving]
  - Product preparation error [Recovering/Resolving]
  - Bradycardia [Recovering/Resolving]
  - Product preparation error [Recovering/Resolving]

NARRATIVE: CASE EVENT DATE: 20230606
